FAERS Safety Report 10250769 (Version 2)
Quarter: 2014Q3

REPORT INFORMATION
  Report Type: Spontaneous
  Country: GB (occurrence: GB)
  Receive Date: 20140620
  Receipt Date: 20140707
  Transmission Date: 20150326
  Serious: Yes (Hospitalization)
  Sender: FDA-Public Use
  Company Number: GB-BRISTOL-MYERS SQUIBB COMPANY-21035472

PATIENT
  Sex: Male

DRUGS (2)
  1. METFORMIN HCL [Suspect]
     Active Substance: METFORMIN HYDROCHLORIDE
  2. BYETTA [Suspect]
     Active Substance: EXENATIDE

REACTIONS (2)
  - Renal failure [Unknown]
  - Hepatic failure [Unknown]
